FAERS Safety Report 5715168-4 (Version None)
Quarter: 2008Q2

REPORT INFORMATION
  Report Type: 
  Country: None (occurrence: None)
  Receive Date: 20080423
  Receipt Date: 20080411
  Transmission Date: 20081010
  Serious: Yes (Hospitalization)
  Sender: FDA-Public Use
  Company Number: CA-ELI_LILLY_AND_COMPANY-CA200803005339

PATIENT
  Age: 42 Year
  Sex: Female

DRUGS (3)
  1. CYMBALTA [Suspect]
     Indication: DEPRESSION
     Dosage: 60 MG, DAILY (1/D)
     Route: 048
  2. TEGRETOL [Concomitant]
  3. PHENERGAN [Concomitant]

REACTIONS (3)
  - BREAST PAIN [None]
  - CLITORAL ENGORGEMENT [None]
  - LIBIDO INCREASED [None]
